FAERS Safety Report 4600864-2 (Version None)
Quarter: 2005Q2

REPORT INFORMATION
  Report Type: 
  Country: None (occurrence: None)
  Receive Date: 20050204
  Receipt Date: 20040302
  Transmission Date: 20051028
  Serious: Yes (Other)
  Sender: FDA-Public Use
  Company Number: US-SHR-03-018151

PATIENT
  Sex: Female

DRUGS (1)
  1. MIRENA [Suspect]
     Dosage: 20 MICROG, CONT, INTRA-UTERINE
     Dates: start: 20031014, end: 20031014

REACTIONS (1)
  - UTERINE PERFORATION [None]
